FAERS Safety Report 9098975 (Version 1)
Quarter: 2013Q1

REPORT INFORMATION
  Report Type: Spontaneous
  Country: US (occurrence: US)
  Receive Date: 20130213
  Receipt Date: 20130213
  Transmission Date: 20140127
  Serious: No
  Sender: FDA-Public Use
  Company Number: US-TEVA-385805USA

PATIENT
  Age: 61 Year
  Sex: Female
  Weight: 56.75 kg

DRUGS (1)
  1. QNASL [Suspect]
     Indication: UPPER-AIRWAY COUGH SYNDROME
     Dosage: 320 MICROGRAM DAILY; 2 SPRAYS EACH NOSTRIL DAILY
     Route: 045
     Dates: start: 20130205

REACTIONS (1)
  - Blood pressure increased [Not Recovered/Not Resolved]
